FAERS Safety Report 11788668 (Version 1)
Quarter: 2015Q4

REPORT INFORMATION
  Report Type: Spontaneous
  Country: US (occurrence: None)
  Receive Date: 20151130
  Receipt Date: 20151130
  Transmission Date: 20160305
  Serious: No
  Sender: FDA-Public Use
  Company Number: None

PATIENT
  Age: 20 Year
  Sex: Female
  Weight: 58.06 kg

DRUGS (2)
  1. PEPTO-BISMOL [Suspect]
     Active Substance: BISMUTH SUBSALICYLATE\CALCIUM CARBONATE
     Route: 048
     Dates: start: 20151122, end: 20151122
  2. VISANNE [Concomitant]
     Active Substance: DIENOGEST

REACTIONS (3)
  - Abdominal pain upper [None]
  - Faeces discoloured [None]
  - Constipation [None]

NARRATIVE: CASE EVENT DATE: 20151124
